FAERS Safety Report 4782409-X (Version None)
Quarter: 2005Q3

REPORT INFORMATION
  Report Type: 
  Country: None (occurrence: None)
  Receive Date: 20050929
  Receipt Date: 20030915
  Transmission Date: 20060218
  Serious: No
  Sender: FDA-Public Use
  Company Number: US-GLAXOSMITHKLINE-A0425933A

PATIENT
  Age: 65 Year
  Sex: Male

DRUGS (11)
  1. COREG [Suspect]
     Route: 048
     Dates: start: 20020401
  2. ASPIRIN [Concomitant]
  3. GARLIC [Concomitant]
  4. ASCORBIC ACID [Concomitant]
  5. CENTRUM MULTIVITAMIN [Concomitant]
  6. CITRACAL [Concomitant]
  7. VITAMIN E [Concomitant]
  8. SELENIUM SULFIDE [Concomitant]
  9. OMEGA-3 [Concomitant]
  10. MULTI-VITAMIN [Concomitant]
  11. VITAMIN D [Concomitant]

REACTIONS (2)
  - AMNESIA [None]
  - HEART RATE IRREGULAR [None]
